FAERS Safety Report 19087670 (Version 1)
Quarter: 2021Q2

REPORT INFORMATION
  Report Type: Spontaneous
  Country: US (occurrence: US)
  Receive Date: 20210402
  Receipt Date: 20210402
  Transmission Date: 20210717
  Serious: No
  Sender: FDA-Public Use
  Company Number: None

PATIENT
  Age: 32 Year
  Sex: Female

DRUGS (1)
  1. DUPIXENT [Suspect]
     Active Substance: DUPILUMAB
     Indication: NASAL POLYPS
     Route: 058
     Dates: start: 20191219

REACTIONS (4)
  - Product leakage [None]
  - Needle issue [None]
  - Syringe issue [None]
  - Incorrect dose administered [None]

NARRATIVE: CASE EVENT DATE: 20210331
